FAERS Safety Report 9742679 (Version 1)
Quarter: 2013Q4

REPORT INFORMATION
  Report Type: Spontaneous
  Country: US (occurrence: US)
  Receive Date: 20131210
  Receipt Date: 20131210
  Transmission Date: 20140711
  Serious: No
  Sender: FDA-Public Use
  Company Number: US-GILEAD-2009-0025400

PATIENT
  Sex: Female

DRUGS (14)
  1. LETAIRIS [Suspect]
     Indication: PULMONARY ARTERIAL HYPERTENSION
     Route: 048
     Dates: start: 20091028
  2. CYMBALTA [Concomitant]
  3. FUROSEMIDE [Concomitant]
  4. TEMAZEPAM [Concomitant]
  5. REQUIN [Concomitant]
  6. NEURONTIN [Concomitant]
  7. VIVELLE-DOT [Concomitant]
  8. AVAPRO [Concomitant]
  9. NADOLOL [Concomitant]
  10. KLOR-CON M10 [Concomitant]
  11. CALCIUM [Concomitant]
  12. LEVOTHROID [Concomitant]
  13. ROZEREM [Concomitant]
  14. ADULT ASPIRIN [Concomitant]

REACTIONS (3)
  - Weight increased [Unknown]
  - Swelling [Unknown]
  - Oedema [Unknown]
